FAERS Safety Report 4554095-5 (Version None)
Quarter: 2005Q1

REPORT INFORMATION
  Report Type: 
  Country: None (occurrence: None)
  Receive Date: 20050113
  Receipt Date: 20050113
  Transmission Date: 20050727
  Serious: Yes (Death, Life-Threatening)
  Sender: FDA-Public Use
  Company Number: None

PATIENT
  Sex: Female
  Weight: 77.1115 kg

DRUGS (2)
  1. LEVAQUIN [Suspect]
     Indication: PNEUMONIA
     Dosage: 250 MG   Q24H   INTRAVENOU
     Route: 042
     Dates: start: 20040813, end: 20040827
  2. ZOSYN [Suspect]
     Indication: PNEUMONIA ASPIRATION
     Dosage: 2.25 GRAM   Q6H   INTRAVENOU
     Route: 042
     Dates: start: 20040826, end: 20040827

REACTIONS (2)
  - REFUSAL OF TREATMENT BY RELATIVE [None]
  - TOXIC EPIDERMAL NECROLYSIS [None]
